FAERS Safety Report 8965602 (Version 1)
Quarter: 2012Q4

REPORT INFORMATION
  Report Type: Spontaneous
  Country: US (occurrence: None)
  Receive Date: 20121212
  Receipt Date: 20121212
  Transmission Date: 20130627
  Serious: No
  Sender: FDA-Public Use
  Company Number: None

PATIENT
  Age: 49 Year
  Sex: Male
  Weight: 151.96 kg

DRUGS (1)
  1. MODAFINIL [Suspect]
     Indication: DAYTIME SLEEPINESS
     Route: 048
     Dates: start: 20121204, end: 20121209

REACTIONS (2)
  - Product substitution issue [None]
  - Drug ineffective [None]
